FAERS Safety Report 26056923 (Version 4)
Quarter: 2025Q4

REPORT INFORMATION
  Report Type: Report from Study
  Country: GB (occurrence: GB)
  Receive Date: 20251118
  Receipt Date: 20251203
  Transmission Date: 20260118
  Serious: Yes (Other)
  Sender: SAMSUNG BIOEPIS
  Company Number: GB-SAMSUNG BIOEPIS-SB-2025-38158

PATIENT
  Sex: Female

DRUGS (2)
  1. PYZCHIVA [Suspect]
     Active Substance: USTEKINUMAB-TTWE
     Indication: Crohn^s disease
     Dosage: 90MG/1ML;
     Route: 058
     Dates: start: 20241119
  2. PYZCHIVA [Suspect]
     Active Substance: USTEKINUMAB-TTWE
     Dosage: 90MG/1ML;
     Route: 058

REACTIONS (15)
  - Nephrolithiasis [Not Recovered/Not Resolved]
  - Cerebrovascular accident [Unknown]
  - Cholelithiasis [Not Recovered/Not Resolved]
  - Blood urine present [Not Recovered/Not Resolved]
  - Haematuria [Unknown]
  - Confusional state [Unknown]
  - Disorientation [Unknown]
  - Migraine [Unknown]
  - Product use issue [Unknown]
  - Chest pain [Unknown]
  - Malaise [Unknown]
  - Musculoskeletal chest pain [Unknown]
  - Herpes zoster [Unknown]
  - Influenza [Unknown]
  - Memory impairment [Unknown]
